FAERS Safety Report 4860082-X (Version None)
Quarter: 2005Q4

REPORT INFORMATION
  Report Type: 
  Country: None (occurrence: None)
  Receive Date: 20051219
  Receipt Date: 20050830
  Transmission Date: 20060501
  Serious: Yes (Hospitalization, Disabling)
  Sender: FDA-Public Use
  Company Number: US-MERCK-0509USA00140

PATIENT
  Age: 53 Year
  Sex: Male
  Weight: 125 kg

DRUGS (14)
  1. VIOXX [Suspect]
     Indication: ARTHRITIS
     Route: 048
     Dates: start: 20000301, end: 20010801
  2. VIOXX [Suspect]
     Route: 048
     Dates: start: 20010901, end: 20020301
  3. VIOXX [Suspect]
     Route: 048
     Dates: start: 20020301, end: 20020706
  4. VIOXX [Suspect]
     Indication: OSTEOARTHRITIS
     Route: 048
     Dates: start: 20000301, end: 20010801
  5. VIOXX [Suspect]
     Route: 048
     Dates: start: 20010901, end: 20020301
  6. VIOXX [Suspect]
     Route: 048
     Dates: start: 20020301, end: 20020706
  7. ACTOS [Concomitant]
     Indication: DIABETES MELLITUS
     Route: 065
     Dates: start: 19991222
  8. ADIPEX-P [Concomitant]
     Indication: OBESITY
     Route: 065
     Dates: start: 20000523, end: 20001017
  9. GLUCOPHAGE [Concomitant]
     Indication: DIABETES MELLITUS
     Route: 065
     Dates: start: 19991221, end: 20020505
  10. MERIDIA [Concomitant]
     Indication: OBESITY
     Route: 065
     Dates: start: 20000117, end: 20000427
  11. MOTRIN [Concomitant]
     Indication: ARTHRITIS
     Route: 065
     Dates: start: 19980406
  12. ATENOLOL [Concomitant]
     Indication: HYPERTENSION
     Route: 065
     Dates: start: 20010914, end: 20050301
  13. METFORMIN [Concomitant]
     Indication: DIABETES MELLITUS
     Route: 065
     Dates: start: 20020606
  14. NORVASC [Concomitant]
     Indication: HYPERTENSION
     Route: 065
     Dates: start: 20011002, end: 20030112

REACTIONS (13)
  - ANAEMIA [None]
  - BLOOD CHOLESTEROL INCREASED [None]
  - CHEST DISCOMFORT [None]
  - CORONARY ARTERY DISEASE [None]
  - DIARRHOEA INFECTIOUS [None]
  - EXOSTOSIS [None]
  - GASTROOESOPHAGEAL REFLUX DISEASE [None]
  - HYPERLIPIDAEMIA [None]
  - MUSCULOSKELETAL CHEST PAIN [None]
  - MYOCARDIAL INFARCTION [None]
  - OBESITY [None]
  - SEXUAL DYSFUNCTION [None]
  - VERTIGO POSITIONAL [None]
